FAERS Safety Report 12788472 (Version 1)
Quarter: 2016Q3

REPORT INFORMATION
  Report Type: Report from Study
  Country: US (occurrence: US)
  Receive Date: 20160928
  Receipt Date: 20160928
  Transmission Date: 20161109
  Serious: Yes (Hospitalization, Other)
  Sender: FDA-Public Use
  Company Number: PHHO2016US013605

PATIENT
  Age: 21 Year
  Sex: Male
  Weight: 59.42 kg

DRUGS (15)
  1. TOBI PODHALER [Suspect]
     Active Substance: TOBRAMYCIN
     Indication: CYSTIC FIBROSIS
     Dosage: 112 MG, BID (28 DAYS ON/OFF)
     Route: 055
     Dates: start: 2014
  2. LANTUS [Concomitant]
     Active Substance: INSULIN GLARGINE
     Indication: DIABETES MELLITUS
     Dosage: 36 U, QHS
     Route: 058
  3. HUMALOG [Concomitant]
     Active Substance: INSULIN LISPRO
     Indication: DIABETES MELLITUS
     Dosage: SLIDING SCALE WITH MEALS (1:6 RATIO)
     Route: 058
     Dates: start: 20160804
  4. HYPERTONIC SALINE SOLUTION [Concomitant]
     Active Substance: SODIUM CHLORIDE
     Indication: OBSTRUCTIVE AIRWAYS DISORDER
     Dosage: 5 ML, BID
     Route: 055
  5. LORATADINE. [Concomitant]
     Active Substance: LORATADINE
     Indication: PRODUCT USED FOR UNKNOWN INDICATION
     Dosage: 10 MG, QD
     Route: 048
     Dates: start: 20151125
  6. CAYSTON [Concomitant]
     Active Substance: AZTREONAM
     Indication: PRODUCT USED FOR UNKNOWN INDICATION
     Dosage: 75 MG, TID (NEBS, 28 DAYS ON/OFF), EVERY OTHER MONTH
     Route: 055
     Dates: start: 20160422
  7. VITAMIN K [Concomitant]
     Active Substance: PHYTONADIONE
     Indication: HYPOVITAMINOSIS
     Dosage: 2 DF, QD
     Route: 048
     Dates: start: 20151125
  8. MVI                                /01825701/ [Concomitant]
     Active Substance: VITAMINS
     Indication: VITAMIN SUPPLEMENTATION
     Dosage: 2 DF, QD
     Route: 048
  9. TOBI PODHALER [Suspect]
     Active Substance: TOBRAMYCIN
     Indication: PSEUDOMONAS INFECTION
     Dosage: 112 MG, BID (28 DAYS ON/OFF)
     Route: 055
     Dates: start: 20160829, end: 20160912
  10. FLOVENT [Concomitant]
     Active Substance: FLUTICASONE PROPIONATE
     Indication: PRODUCT USED FOR UNKNOWN INDICATION
     Dosage: 2 DF (PUFF), BID
     Route: 055
     Dates: start: 20151006
  11. ALBUTEROL. [Concomitant]
     Active Substance: ALBUTEROL
     Indication: OBSTRUCTIVE AIRWAYS DISORDER
     Dosage: 2 DF (PUFF), BID
     Route: 055
  12. AZITHROMYCIN ANHYDROUS. [Concomitant]
     Active Substance: AZITHROMYCIN ANHYDROUS
     Indication: PRODUCT USED FOR UNKNOWN INDICATION
     Dosage: 250 MG, QD
     Route: 048
     Dates: start: 20160523
  13. FLONASE [Concomitant]
     Active Substance: FLUTICASONE PROPIONATE
     Indication: NASAL DISORDER
     Dosage: 2 DF, QD (PRN) BOTH NOSTRILS
     Route: 045
  14. PULMOZYME [Concomitant]
     Active Substance: DORNASE ALFA
     Indication: OBSTRUCTIVE AIRWAYS DISORDER
     Dosage: 2.5 MG (2.5 ML), QD (NEBS)
     Route: 055
     Dates: start: 20151221
  15. BOOST [Concomitant]
     Active Substance: DIETARY SUPPLEMENT
     Indication: NUTRITIONAL SUPPLEMENTATION
     Dosage: 1 DF, BID (HAVING TROUBLE GETTING IT, SO PLANS TO START GETTING SUPPLEMENTS FROM GNC)
     Route: 048
     Dates: start: 20160912

REACTIONS (28)
  - Wheezing [Unknown]
  - Pseudomonas infection [Unknown]
  - Sputum increased [Unknown]
  - Chronic sinusitis [Unknown]
  - Pyrexia [Unknown]
  - Chest discomfort [Unknown]
  - Blood glucose increased [Unknown]
  - Increased viscosity of bronchial secretion [Unknown]
  - Blood alkaline phosphatase increased [Unknown]
  - Haemoglobin decreased [Unknown]
  - Cystic fibrosis related diabetes [Unknown]
  - Gastrooesophageal reflux disease [Unknown]
  - Malaise [Unknown]
  - Glycosylated haemoglobin increased [Unknown]
  - Asthma [Unknown]
  - Infective pulmonary exacerbation of cystic fibrosis [Not Recovered/Not Resolved]
  - Dyspnoea [Unknown]
  - Pancreatic insufficiency [Unknown]
  - Blood 25-hydroxycholecalciferol decreased [Unknown]
  - Forced expiratory volume abnormal [Unknown]
  - Diarrhoea [Unknown]
  - Vitamin E decreased [Unknown]
  - Malnutrition [Unknown]
  - Abdominal pain [Unknown]
  - Cystic fibrosis [Unknown]
  - Infective exacerbation of bronchiectasis [Unknown]
  - Cough [Unknown]
  - Chest pain [Unknown]

NARRATIVE: CASE EVENT DATE: 20160901
